FAERS Safety Report 4885726-8 (Version None)
Quarter: 2006Q1

REPORT INFORMATION
  Report Type: 
  Country: None (occurrence: None)
  Receive Date: 20060117
  Receipt Date: 20060105
  Transmission Date: 20060701
  Serious: Yes (Hospitalization, Other)
  Sender: FDA-Public Use
  Company Number: HQWYE201905JAN06

PATIENT
  Age: 58 Year
  Sex: Female

DRUGS (7)
  1. PANTOPRAZOLE SODIUM [Suspect]
     Indication: PROPHYLAXIS AGAINST GASTROINTESTINAL ULCER
     Dosage: 2O MG 1X PER 1 DAY, ORAL
     Route: 048
     Dates: start: 20020901, end: 20040101
  2. FELDENE [Concomitant]
  3. PREDNISONE [Concomitant]
  4. DIDRONEL [Concomitant]
  5. SPECIAFOLDINE (FOLIC ACID) [Concomitant]
  6. NOVATREX (METHOTREXATE) [Concomitant]
  7. ACETAMINOPHEN W/ PROPOXYPHENE HCL [Concomitant]

REACTIONS (2)
  - FIBROMYALGIA [None]
  - MYALGIA [None]
